FAERS Safety Report 16794553 (Version 1)
Quarter: 2020Q3

REPORT INFORMATION
  Report Type: Spontaneous
  Country: US (occurrence: US)
  Receive Date: 20190911
  Receipt Date: 20190911
  Transmission Date: 20201104
  Serious: No
  Sender: FDA-Public Use
  Company Number: US-ROCHE-2344545

PATIENT
  Age: 36 Year
  Sex: Male

DRUGS (8)
  1. SULFAMETHOXAZOLE/TRIMETHOPRIM [Concomitant]
     Active Substance: SULFAMETHOXAZOLE\TRIMETHOPRIM
  2. ALECTINIB. [Suspect]
     Active Substance: ALECTINIB
     Indication: ANAPLASTIC LARGE-CELL LYMPHOMA
     Route: 065
  3. CEFTRIAXONE. [Concomitant]
     Active Substance: CEFTRIAXONE
  4. ALECTINIB. [Suspect]
     Active Substance: ALECTINIB
     Route: 065
  5. DEXAMETHASONE. [Concomitant]
     Active Substance: DEXAMETHASONE
  6. AMIKACIN. [Concomitant]
     Active Substance: AMIKACIN
  7. METHOTREXATE. [Concomitant]
     Active Substance: METHOTREXATE
  8. IMIPENEM [Concomitant]
     Active Substance: IMIPENEM

REACTIONS (1)
  - Myalgia [Unknown]
